FAERS Safety Report 8317770 (Version 3)
Quarter: 2013Q4

REPORT INFORMATION
  Report Type: Report from Study
  Country: CA (occurrence: CA)
  Receive Date: 20120102
  Receipt Date: 20131205
  Transmission Date: 20140711
  Serious: Yes (Death)
  Sender: FDA-Public Use
  Company Number: CA-ROCHE-1026478

PATIENT
  Sex: Male
  Weight: 79.4 kg

DRUGS (7)
  1. AVASTIN [Suspect]
     Indication: GLIOBLASTOMA
     Route: 042
     Dates: start: 20110405, end: 20111104
  2. AVASTIN [Suspect]
     Dosage: THERAPY DURATION -50 DAYS
     Route: 042
     Dates: start: 20110808
  3. AVASTIN [Suspect]
     Route: 042
  4. DECADRON [Concomitant]
     Route: 065
  5. FRISIUM [Concomitant]
     Route: 065
  6. KEPPRA [Concomitant]
     Route: 065
  7. ZANTAC [Concomitant]

REACTIONS (1)
  - Disease progression [Fatal]
